FAERS Safety Report 4459255-X (Version None)
Quarter: 2004Q3

REPORT INFORMATION
  Report Type: 
  Country: None (occurrence: None)
  Receive Date: 20040922
  Receipt Date: 20040922
  Transmission Date: 20050211
  Serious: Yes (Life-Threatening, Hospitalization)
  Sender: FDA-Public Use
  Company Number: None

PATIENT
  Age: 71 Year
  Sex: Female
  Weight: 68.0396 kg

DRUGS (1)
  1. ANGIOFLUOR TM 10% ALLIANCE PHARMACEUTICALS [Suspect]
     Indication: MACULAR DEGENERATION
     Dosage: IV
     Route: 042
     Dates: start: 20040909, end: 20040912

REACTIONS (4)
  - ARTHRITIS BACTERIAL [None]
  - INDIRECT INFECTION TRANSMISSION [None]
  - PHARMACEUTICAL PRODUCT COMPLAINT [None]
  - STREPTOCOCCAL BACTERAEMIA [None]
